FAERS Safety Report 19618879 (Version 2)
Quarter: 2022Q2

REPORT INFORMATION
  Report Type: Spontaneous
  Country: US (occurrence: None)
  Receive Date: 20210727
  Receipt Date: 20220621
  Transmission Date: 20220721
  Serious: Yes (Other)
  Sender: FDA-Public Use
  Company Number: US-ROCHE-2782923

PATIENT
  Sex: Female

DRUGS (2)
  1. CAPECITABINE [Suspect]
     Active Substance: CAPECITABINE
     Indication: Product used for unknown indication
     Route: 048
  2. TUKYSA [Suspect]
     Active Substance: TUCATINIB
     Indication: Breast cancer female
     Route: 065

REACTIONS (16)
  - Thrombosis [Unknown]
  - Skin discolouration [Unknown]
  - Neuropathy peripheral [Unknown]
  - Fatigue [Unknown]
  - Disturbance in attention [Unknown]
  - Dysphonia [Unknown]
  - Pollakiuria [Unknown]
  - Lymphadenopathy [Unknown]
  - Urine odour abnormal [Unknown]
  - Muscle spasms [Unknown]
  - Dry skin [Unknown]
  - Skin fissures [Unknown]
  - Limb discomfort [Unknown]
  - Lethargy [Unknown]
  - Peripheral swelling [Unknown]
  - Liver function test increased [Unknown]
